FAERS Safety Report 6537866-5 (Version None)
Quarter: 2010Q1

REPORT INFORMATION
  Report Type: 
  Country: None (occurrence: None)
  Receive Date: 20100112
  Receipt Date: 20100112
  Transmission Date: 20100710
  Serious: Yes (Other)
  Sender: FDA-Public Use
  Company Number: None

PATIENT
  Sex: Female
  Weight: 61.2356 kg

DRUGS (23)
  1. ZONISAMIDE [Suspect]
     Indication: MIGRAINE PROPHYLAXIS
     Dosage: 100MG DAILY PO
     Route: 048
     Dates: start: 20091219, end: 20091231
  2. ZONISAMIDE [Suspect]
  3. ZONISAMIDE [Suspect]
  4. VIVELLE-DOT [Concomitant]
  5. PAMELOR [Concomitant]
  6. OMEPRAZOLE [Concomitant]
  7. MAXZIDE [Concomitant]
  8. BENICAR [Concomitant]
  9. ZONEGRAN [Concomitant]
  10. CALCIUM [Concomitant]
  11. VITAMIN B COMPLEX CAP [Concomitant]
  12. VITAMIN B-12 [Concomitant]
  13. VITAMIN D [Concomitant]
  14. ASPIRIN [Concomitant]
  15. MAGNESIUM [Concomitant]
  16. CO [Concomitant]
  17. FISH OIL [Concomitant]
  18. ALEVE (CAPLET) [Concomitant]
  19. VALTREX [Concomitant]
  20. BOTOX INJECTIONS [Concomitant]
  21. ESTRACE [Concomitant]
  22. TORADOL [Concomitant]
  23. AMERGE [Concomitant]

REACTIONS (10)
  - CONFUSIONAL STATE [None]
  - FATIGUE [None]
  - FEELINGS OF WORTHLESSNESS [None]
  - IMPAIRED DRIVING ABILITY [None]
  - MENTAL DISORDER [None]
  - OVERDOSE [None]
  - PRODUCT SUBSTITUTION ISSUE [None]
  - ROAD TRAFFIC ACCIDENT [None]
  - SNORING [None]
  - SOMNOLENCE [None]
